FAERS Safety Report 5034878-8 (Version None)
Quarter: 2006Q2

REPORT INFORMATION
  Report Type: 
  Country: None (occurrence: None)
  Receive Date: 20060627
  Receipt Date: 20060511
  Transmission Date: 20061013
  Serious: Yes (Other)
  Sender: FDA-Public Use
  Company Number: PHEH2006US06393

PATIENT
  Age: 27 Year
  Sex: Female

DRUGS (4)
  1. EXJADE [Suspect]
     Indication: APLASTIC ANAEMIA
     Dosage: 2000 MG, QD
     Route: 048
     Dates: start: 20060101, end: 20060504
  2. EXJADE [Suspect]
     Dosage: 2000 MG, ONCE/SINGLE
     Route: 048
     Dates: start: 20060501, end: 20060501
  3. YASMIN [Concomitant]
  4. PREDNISONE TAB [Concomitant]

REACTIONS (6)
  - DYSPEPSIA [None]
  - FAECES DISCOLOURED [None]
  - GASTRIC HAEMORRHAGE [None]
  - GASTROOESOPHAGEAL REFLUX DISEASE [None]
  - HAEMOGLOBIN DECREASED [None]
  - OCCULT BLOOD [None]
